FAERS Safety Report 5261813-X (Version None)
Quarter: 2007Q1

REPORT INFORMATION
  Report Type: 
  Country: None (occurrence: None)
  Receive Date: 20070310
  Receipt Date: 20070302
  Transmission Date: 20070707
  Serious: Yes (Death, Other)
  Sender: FDA-Public Use
  Company Number: PHBS2007CZ03827

PATIENT
  Age: 49 Year
  Sex: Male

DRUGS (1)
  1. IMATINIB MESYLATE [Suspect]
     Indication: GASTROINTESTINAL STROMAL TUMOUR
     Dosage: 400 MG/D
     Route: 065
     Dates: start: 20040527

REACTIONS (14)
  - ABDOMINAL PAIN LOWER [None]
  - ANOREXIA [None]
  - ARTHRALGIA [None]
  - CARDIAC ARREST [None]
  - EXTRINSIC VASCULAR COMPRESSION [None]
  - GROIN PAIN [None]
  - HYPOTENSION [None]
  - LOSS OF CONSCIOUSNESS [None]
  - OEDEMA GENITAL [None]
  - OEDEMA PERIPHERAL [None]
  - PULMONARY EMBOLISM [None]
  - RESUSCITATION [None]
  - THROMBOSIS [None]
  - TUMOUR NECROSIS [None]
